FAERS Safety Report 9263106 (Version 4)
Quarter: 2013Q2

REPORT INFORMATION
  Report Type: Spontaneous
  Country: US (occurrence: US)
  Receive Date: 20130430
  Receipt Date: 20130604
  Transmission Date: 20140414
  Serious: Yes (Hospitalization)
  Sender: FDA-Public Use
  Company Number: US-009507513-1304USA016692

PATIENT
  Sex: Female

DRUGS (2)
  1. PROVENTIL [Suspect]
     Dosage: UNK
     Route: 055
  2. PROVENTIL [Suspect]
     Dosage: 90MCG 1 STANDARD DOSE OF 6.7
     Route: 055
     Dates: start: 201304

REACTIONS (5)
  - Adverse event [Unknown]
  - Dyspnoea [Not Recovered/Not Resolved]
  - Product packaging quantity issue [Unknown]
  - Drug dose omission [Unknown]
  - Product quality issue [Unknown]
